FAERS Safety Report 24179249 (Version 5)
Quarter: 2025Q3

REPORT INFORMATION
  Report Type: Report from Study
  Country: US (occurrence: US)
  Receive Date: 20240806
  Receipt Date: 20250815
  Transmission Date: 20251020
  Serious: No
  Sender: MERCK SHARP & DOHME LLC
  Company Number: None

PATIENT
  Sex: Female
  Weight: 42.184 kg

DRUGS (47)
  1. SOTATERCEPT [Suspect]
     Active Substance: SOTATERCEPT
     Route: 058
     Dates: start: 20250620
  2. SOTATERCEPT [Suspect]
     Active Substance: SOTATERCEPT
  3. SOTATERCEPT [Suspect]
     Active Substance: SOTATERCEPT
  4. SOTATERCEPT [Suspect]
     Active Substance: SOTATERCEPT
  5. WINREVAIR [Suspect]
     Active Substance: SOTATERCEPT-CSRK
     Indication: Pulmonary arterial hypertension
     Dosage: ^0.5 MLS^ / ^Q3W^
     Route: 058
     Dates: start: 20240604
  6. WINREVAIR [Suspect]
     Active Substance: SOTATERCEPT-CSRK
  7. WINREVAIR [Suspect]
     Active Substance: SOTATERCEPT-CSRK
  8. WINREVAIR [Suspect]
     Active Substance: SOTATERCEPT-CSRK
  9. REMODULIN [Suspect]
     Active Substance: TREPROSTINIL
     Indication: Pulmonary arterial hypertension
     Route: 041
     Dates: start: 20231023
  10. REMODULIN [Suspect]
     Active Substance: TREPROSTINIL
     Indication: Pulmonary arterial hypertension
     Route: 041
     Dates: start: 2025
  11. REMODULIN [Suspect]
     Active Substance: TREPROSTINIL
     Indication: Pulmonary arterial hypertension
     Route: 041
     Dates: start: 20250710
  12. GAVISCON [ALUMINIUM HYDROXIDE;MAGNESIUM CARBONATE] [Concomitant]
  13. IBUPROFEN [Concomitant]
     Active Substance: IBUPROFEN
  14. TYLENOL [Concomitant]
     Active Substance: ACETAMINOPHEN
  15. OPSUMIT [Concomitant]
     Active Substance: MACITENTAN
  16. LASIX [Concomitant]
     Active Substance: FUROSEMIDE
  17. ARNICA MEDIFLOR [Concomitant]
  18. SILDENAFIL CITRATE [Concomitant]
     Active Substance: SILDENAFIL CITRATE
  19. VITAMIN D3 [Concomitant]
     Active Substance: CHOLECALCIFEROL
  20. POTASSIUM CHLORIDE [Concomitant]
     Active Substance: POTASSIUM CHLORIDE
     Indication: Product used for unknown indication
  21. CHLORPHENIRAMINE MALEATE [Concomitant]
     Active Substance: CHLORPHENIRAMINE MALEATE
  22. ALOE VERA;LIDOCAINE [Concomitant]
  23. DIAZEPAM [Concomitant]
     Active Substance: DIAZEPAM
  24. SPIRONOLACTONE [Concomitant]
     Active Substance: SPIRONOLACTONE
  25. VITAMIN C [Concomitant]
     Active Substance: ASCORBIC ACID
  26. LORATADINE [Concomitant]
     Active Substance: LORATADINE
  27. OXYGEN [Concomitant]
     Active Substance: OXYGEN
  28. SODIUM CHLORIDE [Concomitant]
     Active Substance: SODIUM CHLORIDE
  29. TREPROSTINIL [Concomitant]
     Active Substance: TREPROSTINIL
  30. ALBUTEROL SULFATE [Concomitant]
     Active Substance: ALBUTEROL SULFATE
  31. VANCOMYCIN HYDROCHLORIDE [Concomitant]
     Active Substance: VANCOMYCIN HYDROCHLORIDE
  32. METHOCARBAMOL [Concomitant]
     Active Substance: METHOCARBAMOL
  33. ACID GONE ANTACID [Concomitant]
     Active Substance: ALUMINUM HYDROXIDE\MAGNESIUM CARBONATE
  34. ALBUTEROL SULFATE [Concomitant]
     Active Substance: ALBUTEROL SULFATE
  35. LIDOCAINE HYDROCHLORIDE [Concomitant]
     Active Substance: LIDOCAINE HYDROCHLORIDE
  36. PROBIOTIC ACIDOPHILUS-PECTIN [Concomitant]
  37. COUGH DROPS [Concomitant]
     Active Substance: MENTHOL
  38. BUMETANIDE [Concomitant]
     Active Substance: BUMETANIDE
  39. IPRATROPIUM BROMIDE [Concomitant]
     Active Substance: IPRATROPIUM BROMIDE
  40. AZELASTINE HYDROCHLORIDE [Concomitant]
     Active Substance: AZELASTINE HYDROCHLORIDE
  41. FLUNISOLIDE [Concomitant]
     Active Substance: FLUNISOLIDE
  42. ITCH RELIEF [Concomitant]
  43. ONDANSETRON HYDROCHLORIDE [Concomitant]
     Active Substance: ONDANSETRON HYDROCHLORIDE
  44. FLUTICASONE PROPIONATE [Concomitant]
     Active Substance: FLUTICASONE PROPIONATE
  45. ANTACID EXTRA STRENGTH NOS [Concomitant]
     Active Substance: UNSPECIFIED INGREDIENT
  46. PREDNISONE [Concomitant]
     Active Substance: PREDNISONE
  47. TRAMADOL HCL [Concomitant]
     Active Substance: TRAMADOL HYDROCHLORIDE

REACTIONS (39)
  - Cough [Unknown]
  - Inappropriate schedule of product administration [Unknown]
  - Erythema [Unknown]
  - Erythema [Unknown]
  - Photosensitivity reaction [Unknown]
  - Headache [Recovering/Resolving]
  - Sluggishness [Unknown]
  - Gait inability [Unknown]
  - Fatigue [Unknown]
  - Back pain [Recovering/Resolving]
  - Dizziness [Recovering/Resolving]
  - Diarrhoea [Recovering/Resolving]
  - Cough [Recovering/Resolving]
  - Haematocrit increased [Unknown]
  - Haemoglobin increased [Unknown]
  - Laboratory test abnormal [Unknown]
  - Drug ineffective [Unknown]
  - Therapy non-responder [Unknown]
  - Diarrhoea [Unknown]
  - Chills [Unknown]
  - Vomiting [Unknown]
  - Flushing [Unknown]
  - Product preparation error [Unknown]
  - Injection site bruising [Unknown]
  - Vision blurred [Unknown]
  - Headache [Unknown]
  - Miosis [Unknown]
  - Lacrimation increased [Unknown]
  - Pain in jaw [Unknown]
  - Neck pain [Unknown]
  - Therapeutic product effect delayed [Unknown]
  - Skin haemorrhage [Unknown]
  - Ocular discomfort [Unknown]
  - Anisocoria [Unknown]
  - Wrong technique in product usage process [Unknown]
  - Injection site vesicles [Unknown]
  - Wrong technique in device usage process [Unknown]
  - Injury associated with device [Unknown]
  - Wrong technique in product usage process [Unknown]

NARRATIVE: CASE EVENT DATE: 20240101
